FAERS Safety Report 11323990 (Version 7)
Quarter: 2015Q3

REPORT INFORMATION
  Report Type: Spontaneous
  Country: JP (occurrence: JP)
  Receive Date: 20150730
  Receipt Date: 20150904
  Transmission Date: 20151125
  Serious: Yes (Life-Threatening, Other)
  Sender: FDA-Public Use
  Company Number: JP-PFIZER INC-2015250115

PATIENT
  Age: 74 Year
  Sex: Male
  Weight: 49 kg

DRUGS (6)
  1. ERISPAN [Suspect]
     Active Substance: FLUDIAZEPAM
     Dosage: 0.25 MG, 1X/DAY
     Route: 048
     Dates: end: 20150723
  2. GASLON [Suspect]
     Active Substance: IRSOGLADINE MALEATE
     Indication: GASTRITIS
     Dosage: 2 MG, 2X/DAY
     Route: 048
     Dates: end: 20150723
  3. LYRICA [Suspect]
     Active Substance: PREGABALIN
     Indication: SPINAL COLUMN STENOSIS
     Dosage: 25 MG, 3X/DAY
     Route: 048
     Dates: end: 20150724
  4. CELECOX [Suspect]
     Active Substance: CELECOXIB
     Indication: SPINAL COLUMN STENOSIS
     Dosage: 100 MG, 2X/DAY
     Route: 048
     Dates: end: 20150724
  5. SPIRONOLACTONE. [Concomitant]
     Active Substance: SPIRONOLACTONE
     Dosage: 25 MG, 1X/DAY
     Route: 048
     Dates: end: 20150723
  6. LIMAPROST ALFADEX [Concomitant]
     Active Substance: LIMAPROST
     Indication: SPINAL COLUMN STENOSIS
     Dosage: 5 ?G, 3X/DAY
     Route: 048

REACTIONS (6)
  - Idiopathic pulmonary fibrosis [Unknown]
  - Spinal compression fracture [Unknown]
  - Emphysema [Unknown]
  - Interstitial lung disease [Not Recovered/Not Resolved]
  - Bronchiectasis [Unknown]
  - Red blood cell count decreased [Unknown]

NARRATIVE: CASE EVENT DATE: 20150318
